FAERS Safety Report 7879641-5 (Version None)
Quarter: 2011Q4

REPORT INFORMATION
  Report Type: 
  Country: None (occurrence: None)
  Receive Date: 20111101
  Receipt Date: 20111025
  Transmission Date: 20120403
  Serious: Yes (Death)
  Sender: FDA-Public Use
  Company Number: US-GLAXOSMITHKLINE-A0951373A

PATIENT
  Age: 52 Year
  Sex: Male

DRUGS (4)
  1. ADVAIR DISKUS 100/50 [Suspect]
     Indication: ASTHMA
     Route: 055
  2. ALBUTEROL SULFATE [Concomitant]
  3. PROVENTIL [Concomitant]
  4. NEBULIZER [Concomitant]

REACTIONS (1)
  - ROAD TRAFFIC ACCIDENT [None]
